FAERS Safety Report 5153180-7 (Version None)
Quarter: 2006Q4

REPORT INFORMATION
  Report Type: 
  Country: None (occurrence: None)
  Receive Date: 20061114
  Receipt Date: 20061114
  Transmission Date: 20070319
  Serious: No
  Sender: FDA-Public Use
  Company Number: None

PATIENT

DRUGS (1)
  1. PHENERGAN [Suspect]
     Dosage: AMPUL 25 MG/ML  INJECTABLE

REACTIONS (6)
  - BURNING SENSATION [None]
  - DRUG ADMINISTRATION ERROR [None]
  - INJECTION SITE IRRITATION [None]
  - INJECTION SITE SWELLING [None]
  - MEDICATION ERROR [None]
  - PAIN [None]
